FAERS Safety Report 8015708-9 (Version None)
Quarter: 2011Q4

REPORT INFORMATION
  Report Type: 
  Country: None (occurrence: None)
  Receive Date: 20111230
  Receipt Date: 20111216
  Transmission Date: 20120403
  Serious: Yes (Other)
  Sender: FDA-Public Use
  Company Number: PHHY2011PL113137

PATIENT
  Age: 63 Year
  Sex: Female

DRUGS (4)
  1. CYCLOSPORINE [Suspect]
     Indication: RENAL TRANSPLANT
     Dosage: 100 MG, TWO TIMES
  2. MYCOPHENOLATE MOFETIL [Concomitant]
     Dosage: 2 G, UNK
  3. GLUCOCORTICOSTEROIDS [Concomitant]
  4. CERTICAN [Suspect]
     Indication: RENAL TRANSPLANT
     Dosage: 0.75 MG, TWO TIMES

REACTIONS (4)
  - DYSPHAGIA [None]
  - OEDEMA MUCOSAL [None]
  - PRURITUS [None]
  - RASH MACULAR [None]
